FAERS Safety Report 11761457 (Version 2)
Quarter: 2016Q1

REPORT INFORMATION
  Report Type: Spontaneous
  Country: US (occurrence: US)
  Receive Date: 20151120
  Receipt Date: 20160115
  Transmission Date: 20160525
  Serious: Yes (Other)
  Sender: FDA-Public Use
  Company Number: US-PRINSTON PHARMACEUTICAL INC.-2015PRN00109

PATIENT
  Age: 72 Year
  Sex: Female
  Weight: 52.15 kg

DRUGS (2)
  1. CREON 24 [Suspect]
     Active Substance: AMYLASE\LIPASE\PROTEASE
     Dosage: UNK, 3X/DAY
     Dates: start: 2010
  2. LISINOPRIL. [Suspect]
     Active Substance: LISINOPRIL
     Indication: HYPERTENSION
     Dosage: 20 MG, 1X/DAY
     Route: 048
     Dates: start: 201111, end: 20151002

REACTIONS (3)
  - Abdominal distension [Recovered/Resolved]
  - Blood urea increased [Recovered/Resolved]
  - Leukopenia [Recovering/Resolving]

NARRATIVE: CASE EVENT DATE: 201111
